FAERS Safety Report 11457560 (Version 1)
Quarter: 2015Q3

REPORT INFORMATION
  Report Type: Spontaneous
  Country: CA (occurrence: None)
  Receive Date: 20150902
  Receipt Date: 20150902
  Transmission Date: 20151125
  Serious: Yes (Other)
  Sender: FDA-Public Use
  Company Number: 2015-001156

PATIENT
  Age: 67 Year
  Sex: Female
  Weight: 63.5 kg

DRUGS (7)
  1. DILANTIN [Concomitant]
     Active Substance: PHENYTOIN
  2. LIPITOR [Concomitant]
     Active Substance: ATORVASTATIN CALCIUM
  3. ACTONEL [Suspect]
     Active Substance: RISEDRONATE SODIUM
     Indication: OSTEOPOROSIS
     Route: 048
     Dates: start: 20090610
  4. CALCIUM W/ MAGNESIUM /VITAMIN D (CALCIUM, MAGNESIUM, VITAMIN D NOS) [Concomitant]
  5. ENALAPRIL (ENALAPRIL) [Concomitant]
     Active Substance: ENALAPRIL
  6. METOPROLOL (METOPROLOL) [Concomitant]
     Active Substance: METOPROLOL
  7. WARFARIN (WARFARIN) [Concomitant]
     Active Substance: WARFARIN

REACTIONS (8)
  - Arthralgia [None]
  - Memory impairment [None]
  - Unresponsive to stimuli [None]
  - Headache [None]
  - Gait disturbance [None]
  - Syncope [None]
  - Pain in extremity [None]
  - Fall [None]

NARRATIVE: CASE EVENT DATE: 2014
